FAERS Safety Report 11778830 (Version 2)
Quarter: 2016Q1

REPORT INFORMATION
  Report Type: Spontaneous
  Country: ZA (occurrence: ZA)
  Receive Date: 20151125
  Receipt Date: 20160129
  Transmission Date: 20160525
  Serious: Yes (Life-Threatening, Hospitalization)
  Sender: FDA-Public Use
  Company Number: ZA-ABBVIE-15K-143-1504584-00

PATIENT
  Sex: Male
  Weight: 130 kg

DRUGS (6)
  1. LAMICTIN [Concomitant]
     Active Substance: LAMOTRIGINE
     Indication: EPILEPSY
     Dosage: 200 MG BI DAILY
     Route: 048
  2. ZUVAMOR [Concomitant]
     Active Substance: ROSUVASTATIN
     Indication: BLOOD CHOLESTEROL ABNORMAL
     Dosage: 40MG DAILY
     Route: 048
  3. HUMIRA [Suspect]
     Active Substance: ADALIMUMAB
     Indication: CROHN^S DISEASE
     Route: 058
  4. SEEDEP [Concomitant]
     Indication: DEPRESSION
     Dosage: 50MG DAILY
     Route: 048
  5. METHOTREXATE [Concomitant]
     Active Substance: METHOTREXATE
     Indication: CROHN^S DISEASE
     Dosage: 25MG PER WEEK
     Route: 058
  6. MOLIPAXIN [Concomitant]
     Active Substance: TRAZODONE HYDROCHLORIDE
     Indication: DEPRESSION
     Dosage: 50MG DAILY
     Route: 048

REACTIONS (3)
  - Knee operation [Unknown]
  - Interstitial lung disease [Recovered/Resolved]
  - Condition aggravated [Unknown]
